FAERS Safety Report 13081912 (Version 2)
Quarter: 2017Q1

REPORT INFORMATION
  Report Type: Spontaneous
  Country: GB (occurrence: GB)
  Receive Date: 20170103
  Receipt Date: 20170117
  Transmission Date: 20170428
  Serious: Yes (Other)
  Sender: FDA-Public Use
  Company Number: GB-PFIZER INC-2016605744

PATIENT
  Age: 87 Year
  Sex: Female

DRUGS (4)
  1. BUTRANS [Suspect]
     Active Substance: BUPRENORPHINE
     Dosage: 5 UG, UNK
     Route: 061
  2. QUETIAPINE. [Suspect]
     Active Substance: QUETIAPINE
     Dosage: EVERY NIGHT, 12.5 MG, 1X/DAY
     Route: 048
  3. RIVASTIGMINE. [Suspect]
     Active Substance: RIVASTIGMINE
     Dosage: 1.5 MG, 2X/DAY
     Route: 048
  4. SERTRALINE HCL [Suspect]
     Active Substance: SERTRALINE HYDROCHLORIDE
     Dosage: 50 MG, 1X/DAY
     Route: 048

REACTIONS (2)
  - Fall [Unknown]
  - Humerus fracture [Unknown]

NARRATIVE: CASE EVENT DATE: 20161207
